FAERS Safety Report 13820851 (Version 1)
Quarter: 2017Q3

REPORT INFORMATION
  Report Type: Spontaneous
  Country: KR (occurrence: KR)
  Receive Date: 20170801
  Receipt Date: 20170801
  Transmission Date: 20171127
  Serious: Yes (Other)
  Sender: FDA-Public Use
  Company Number: KR-009507513-1602KOR002186

PATIENT
  Age: 58 Year
  Sex: Female
  Weight: 51.9 kg

DRUGS (24)
  1. DOXORUBICIN [Concomitant]
     Active Substance: DOXORUBICIN
     Indication: LYMPHOMA
     Dosage: 75 MG, ONCE, CYCLE 1
     Route: 042
     Dates: start: 20150523, end: 20150523
  2. STILNOX [Concomitant]
     Active Substance: ZOLPIDEM TARTRATE
     Indication: INSOMNIA
     Dosage: 6.25 MG, DAILY
     Route: 048
     Dates: start: 20150523, end: 20150604
  3. KYTRIL [Concomitant]
     Active Substance: GRANISETRON HYDROCHLORIDE
     Indication: PROPHYLAXIS OF NAUSEA AND VOMITING
     Dosage: 1 MG, ONCE
     Route: 042
     Dates: start: 20150523, end: 20150523
  4. MAGO [Concomitant]
     Indication: CONSTIPATION PROPHYLAXIS
     Dosage: 500 MG, TID (THREE TIMES A DAY)
     Route: 048
     Dates: start: 20150523, end: 20150604
  5. SEPTRIN [Concomitant]
     Active Substance: SULFAMETHOXAZOLE\TRIMETHOPRIM
     Indication: INFECTION PROPHYLAXIS
     Dosage: 480 MG (1 TABLET DAILY)
     Route: 048
     Dates: start: 20150523, end: 20150529
  6. MECKOOL [Concomitant]
     Indication: PROPHYLAXIS OF NAUSEA AND VOMITING
     Dosage: 10 MG, DAILY
     Route: 042
     Dates: start: 20150525, end: 20150529
  7. METOCLOPRAMIDE. [Concomitant]
     Active Substance: METOCLOPRAMIDE
     Indication: PROPHYLAXIS OF NAUSEA AND VOMITING
     Dosage: 5 MG, TID (THREE TIMES A DAY)
     Route: 048
     Dates: start: 20150529, end: 20150602
  8. MUCOSTA [Concomitant]
     Active Substance: REBAMIPIDE
     Indication: PROPHYLAXIS
     Dosage: 100 MG, TID (THREE TIMES A DAY)
     Route: 048
     Dates: start: 20150523, end: 20150524
  9. NEULASTA [Concomitant]
     Active Substance: PEGFILGRASTIM
     Indication: PROPHYLAXIS
     Dosage: 6 MG, ONCE
     Route: 058
     Dates: start: 20150524, end: 20150524
  10. EMEND (FOSAPREPITANT DIMEGLUMINE) [Suspect]
     Active Substance: FOSAPREPITANT DIMEGLUMINE
     Indication: PROPHYLAXIS OF NAUSEA AND VOMITING
     Dosage: 150 MG, ONCE
     Route: 042
     Dates: start: 20150523, end: 20150523
  11. ENDOXAN [Concomitant]
     Active Substance: CYCLOPHOSPHAMIDE
     Indication: LYMPHOMA
     Dosage: 1130 MG, ONCE, CYCLE 1
     Route: 042
     Dates: start: 20150523, end: 20150523
  12. VINCRISTINE SULFATE. [Concomitant]
     Active Substance: VINCRISTINE SULFATE
     Indication: LYMPHOMA
     Dosage: 2 MG, ONCE, CYCLE 1
     Route: 042
     Dates: start: 20150523, end: 20150523
  13. MOTILIUM [Concomitant]
     Active Substance: DOMPERIDONE
     Indication: PROPHYLAXIS OF NAUSEA AND VOMITING
     Dosage: 12.72 MG, BID (TWICE A DAY)
     Route: 048
     Dates: start: 20150523, end: 20150527
  14. ULTRACET [Concomitant]
     Active Substance: ACETAMINOPHEN\TRAMADOL HYDROCHLORIDE
     Indication: PAIN PROPHYLAXIS
     Dosage: 362.5 MG, BID ( 1 TABLET, TWICE A DAY)
     Route: 048
     Dates: start: 20150523, end: 20150524
  15. DISOLRIN [Concomitant]
     Indication: PROPHYLAXIS OF NAUSEA AND VOMITING
     Dosage: 20 MG, ONCE
     Route: 042
     Dates: start: 20150523, end: 20150523
  16. AGIO GRANULES [Concomitant]
     Indication: GASTROINTESTINAL MOTILITY DISORDER
     Dosage: 6 G, DAILY
     Route: 048
     Dates: start: 20150523, end: 20150604
  17. LYRICA [Concomitant]
     Active Substance: PREGABALIN
     Indication: ARTHRITIS
     Dosage: 75 MG, TID (THREE TIMES A DAY)
     Route: 048
     Dates: start: 20150524, end: 20150604
  18. IRCODON [Concomitant]
     Active Substance: OXYCODONE HYDROCHLORIDE
     Indication: PAIN PROPHYLAXIS
     Dosage: 5 MG, DAILY
     Route: 048
     Dates: start: 20150529, end: 20150604
  19. EMEND (FOSAPREPITANT DIMEGLUMINE) [Suspect]
     Active Substance: FOSAPREPITANT DIMEGLUMINE
     Indication: PROPHYLAXIS OF NAUSEA AND VOMITING
  20. DONG A GASTER [Concomitant]
     Indication: PROPHYLAXIS
     Dosage: 20 MG, BID (TWICE A DAY)
     Route: 042
     Dates: start: 20150523, end: 20150524
  21. DONG A GASTER [Concomitant]
     Indication: PROPHYLAXIS
     Dosage: 20 MG, BID (TWICE A DAY)
     Route: 048
     Dates: start: 20150525, end: 20150604
  22. FENTAMAX [Concomitant]
     Indication: PAIN PROPHYLAXIS
     Dosage: 25 MG, ONE PATCH DAILY (25 MICROGRAM /H 10.56 CM)
     Dates: start: 20150124, end: 20150531
  23. MAXIPIME [Concomitant]
     Active Substance: CEFEPIME HYDROCHLORIDE
     Indication: INFECTION PROPHYLAXIS
     Dosage: 2 G, BID (TWICE DAILY)
     Route: 042
     Dates: start: 20150525, end: 20150526
  24. TRIDOL (TRAMADOL HYDROCHLORIDE) [Concomitant]
     Indication: PAIN PROPHYLAXIS
     Dosage: 200 MG, BID TWICE DAILY(STRENGTH 100 MG/2 ML)
     Route: 042
     Dates: start: 20150528, end: 20150529

REACTIONS (1)
  - Pyrexia [Recovered/Resolved]

NARRATIVE: CASE EVENT DATE: 20150531
